FAERS Safety Report 18980453 (Version 1)
Quarter: 2021Q1

REPORT INFORMATION
  Report Type: Spontaneous
  Country: CH (occurrence: CH)
  Receive Date: 20210308
  Receipt Date: 20210308
  Transmission Date: 20210420
  Serious: Yes (Hospitalization)
  Sender: FDA-Public Use
  Company Number: CH-TEVA-2021-CH-1887997

PATIENT
  Age: 47 Year
  Sex: Female

DRUGS (8)
  1. ALPRAZOLAM. [Concomitant]
     Active Substance: ALPRAZOLAM
  2. LAMOTRIGINE. [Concomitant]
     Active Substance: LAMOTRIGINE
  3. CLOZAPINE. [Suspect]
     Active Substance: CLOZAPINE
     Dosage: 200 MILLIGRAM DAILY;
     Dates: start: 202011, end: 20201208
  4. ZOLPIDEM [Concomitant]
     Active Substance: ZOLPIDEM TARTRATE
     Dosage: AS NECESSARY
  5. CLOZAPINE. [Suspect]
     Active Substance: CLOZAPINE
     Dates: start: 20210202, end: 20210203
  6. SERTRALINE [Concomitant]
     Active Substance: SERTRALINE HYDROCHLORIDE
  7. CLOZAPINE. [Suspect]
     Active Substance: CLOZAPINE
     Dates: start: 20201208, end: 20210201
  8. CLOZAPINE. [Suspect]
     Active Substance: CLOZAPINE
     Dates: start: 20210204

REACTIONS (2)
  - Eye movement disorder [Recovering/Resolving]
  - Dyskinesia [Recovering/Resolving]

NARRATIVE: CASE EVENT DATE: 20210130
